FAERS Safety Report 12636575 (Version 2)
Quarter: 2016Q3

REPORT INFORMATION
  Report Type: Report from Study
  Country: US (occurrence: US)
  Receive Date: 20160809
  Receipt Date: 20160817
  Transmission Date: 20161109
  Serious: Yes (Other)
  Sender: FDA-Public Use
  Company Number: PHEH2016US019860

PATIENT
  Sex: Male

DRUGS (1)
  1. GLEEVEC [Suspect]
     Active Substance: IMATINIB MESYLATE
     Indication: LEUKAEMIA
     Route: 065

REACTIONS (5)
  - Muscle spasms [Unknown]
  - Leukaemia recurrent [Unknown]
  - Pain in extremity [Recovered/Resolved]
  - Eye swelling [Unknown]
  - Fluid retention [Unknown]
